FAERS Safety Report 7564033-9 (Version None)
Quarter: 2011Q2

REPORT INFORMATION
  Report Type: 
  Country: None (occurrence: None)
  Receive Date: 20110622
  Receipt Date: 20080611
  Transmission Date: 20111010
  Serious: Yes (Other)
  Sender: FDA-Public Use
  Company Number: CA-GENENTECH-320440

PATIENT
  Sex: Female
  Weight: 56 kg

DRUGS (2)
  1. ANTI-FUNGAL [Concomitant]
     Indication: PRODUCT USED FOR UNKNOWN INDICATION
  2. OMALIZUMAB [Suspect]
     Indication: ASTHMA
     Dosage: 300 MG, Q2W
     Route: 058
     Dates: start: 20050425

REACTIONS (4)
  - DYSPNOEA [None]
  - CATARACT [None]
  - PRODUCTIVE COUGH [None]
  - SINUSITIS [None]
